FAERS Safety Report 8795739 (Version 1)
Quarter: 2012Q4

REPORT INFORMATION
  Report Type: 
  Country: US (occurrence: US)
  Receive Date: 20120919
  Receipt Date: 20120919
  Transmission Date: 20130627
  Serious: Yes (Hospitalization, Other)
  Sender: FDA-Public Use
  Company Number: US-PFIZER INC-2012230387

PATIENT
  Sex: Male

DRUGS (1)
  1. TIKOSYN [Suspect]
     Dosage: UNK

REACTIONS (1)
  - Cerebrovascular accident [Unknown]
